FAERS Safety Report 7340063-7 (Version None)
Quarter: 2011Q1

REPORT INFORMATION
  Report Type: 
  Country: None (occurrence: None)
  Receive Date: 20110309
  Receipt Date: 20100909
  Transmission Date: 20110831
  Serious: Yes (Hospitalization, Other)
  Sender: FDA-Public Use
  Company Number: US-BAYER-200942395NA

PATIENT
  Sex: Female
  Weight: 91 kg

DRUGS (3)
  1. YAZ [Suspect]
     Indication: POLYCYSTIC OVARIES
     Dosage: UNK
     Dates: start: 20081001, end: 20090211
  2. CELEBREX [Concomitant]
     Dosage: UNK
     Dates: start: 20000101
  3. YASMIN [Suspect]
     Indication: PRODUCT USED FOR UNKNOWN INDICATION
     Dosage: UNK

REACTIONS (5)
  - ERYTHEMA [None]
  - PAIN [None]
  - HYPOAESTHESIA [None]
  - SWELLING [None]
  - DEEP VEIN THROMBOSIS [None]
